FAERS Safety Report 5027231-4 (Version None)
Quarter: 2006Q2

REPORT INFORMATION
  Report Type: 
  Country: None (occurrence: None)
  Receive Date: 20060501
  Receipt Date: 20060110
  Transmission Date: 20061013
  Serious: No
  Sender: FDA-Public Use
  Company Number: 2006PV006902

PATIENT
  Age: 62 Year
  Sex: Female
  Weight: 86.1834 kg

DRUGS (5)
  1. SYMLIN [Suspect]
     Indication: DIABETES MELLITUS NON-INSULIN-DEPENDENT
     Dosage: 20 MCG; BID; SC; SEE IMAGE
     Route: 058
     Dates: end: 20060110
  2. SYMLIN [Suspect]
     Indication: DIABETES MELLITUS NON-INSULIN-DEPENDENT
     Dosage: 20 MCG; BID; SC; SEE IMAGE
     Route: 058
     Dates: start: 20051212
  3. LANTUS [Concomitant]
  4. HUMALOG [Concomitant]
  5. METFORMIN [Concomitant]

REACTIONS (2)
  - ERYTHEMA [None]
  - PRURITUS [None]
